FAERS Safety Report 17099420 (Version 6)
Quarter: 2020Q1

REPORT INFORMATION
  Report Type: Spontaneous
  Country: US (occurrence: US)
  Receive Date: 20191202
  Receipt Date: 20200319
  Transmission Date: 20200409
  Serious: Yes (Other)
  Sender: FDA-Public Use
  Company Number: US-PFIZER INC-2019515954

PATIENT
  Age: 73 Year
  Sex: Female
  Weight: 68.4 kg

DRUGS (2)
  1. PREMPRO [Suspect]
     Active Substance: ESTROGENS, CONJUGATED\MEDROXYPROGESTERONE ACETATE
     Dosage: UNK, ALTERNATE DAY (EVERY OTHER DAY FOR THREE WEEKS)
  2. PREMPRO [Suspect]
     Active Substance: ESTROGENS, CONJUGATED\MEDROXYPROGESTERONE ACETATE
     Dosage: UNK, DAILY(0.3-1.5 MG, TAKE ONE DAILY BY MOUTH)
     Route: 048

REACTIONS (4)
  - Sjogren^s syndrome [Unknown]
  - Dehydration [Unknown]
  - Intentional product misuse [Unknown]
  - Vulvovaginal dryness [Unknown]
